FAERS Safety Report 23678458 (Version 2)
Quarter: 2024Q2

REPORT INFORMATION
  Report Type: Spontaneous
  Country: CL (occurrence: CL)
  Receive Date: 20240327
  Receipt Date: 20240406
  Transmission Date: 20240716
  Serious: Yes (Other)
  Sender: FDA-Public Use
  Company Number: CL-009507513-2403CHL008123

PATIENT
  Age: 29 Year
  Sex: Female

DRUGS (1)
  1. PEMBROLIZUMAB [Suspect]
     Active Substance: PEMBROLIZUMAB
     Indication: Triple negative breast cancer
     Dosage: UNK

REACTIONS (9)
  - Neutropenia [Unknown]
  - Polyarthritis [Unknown]
  - Fatigue [Unknown]
  - Constipation [Unknown]
  - Nausea [Unknown]
  - Anaemia [Unknown]
  - Hot flush [Unknown]
  - Rash [Unknown]
  - Hepatic enzyme increased [Unknown]
